FAERS Safety Report 4483534-3 (Version None)
Quarter: 2004Q4

REPORT INFORMATION
  Report Type: 
  Country: None (occurrence: None)
  Receive Date: 20041020
  Receipt Date: 20041020
  Transmission Date: 20050328
  Serious: Yes (Hospitalization)
  Sender: FDA-Public Use
  Company Number: None

PATIENT
  Age: 82 Year
  Sex: Female

DRUGS (8)
  1. METOPROLOL TARTRATE [Suspect]
     Indication: HYPERTENSION
  2. VERAPAMIL [Suspect]
  3. METOPROLOL-TOPROL XL [Concomitant]
  4. ISOSORBIDE MONONITIRATE-IMDUR [Concomitant]
  5. FLUVASTATIN-LESCOL [Concomitant]
  6. LEVOTHYROX [Concomitant]
  7. SYNTHROID [Concomitant]
  8. ASPIRIN [Concomitant]

REACTIONS (5)
  - CHEST PAIN [None]
  - MICROANGIOPATHY [None]
  - PARAESTHESIA [None]
  - SINUS BRADYCARDIA [None]
  - SYNCOPE [None]
